FAERS Safety Report 6155885-8 (Version None)
Quarter: 2009Q2

REPORT INFORMATION
  Report Type: 
  Country: None (occurrence: None)
  Receive Date: 20090415
  Receipt Date: 20090415
  Transmission Date: 20091009
  Serious: Yes (Hospitalization)
  Sender: FDA-Public Use
  Company Number: PHHO2002AU06770

PATIENT
  Sex: Female
  Weight: 71 kg

DRUGS (3)
  1. CGS 20267 T30748+ [Suspect]
     Indication: BREAST CANCER
     Dosage: 2.5 MG, QD
     Route: 048
     Dates: start: 20020711
  2. LOPID [Concomitant]
     Indication: HYPERCHOLESTEROLAEMIA
  3. AVAPRO [Concomitant]
     Indication: HYPERTENSION

REACTIONS (7)
  - ASCITES [None]
  - CONCOMITANT DISEASE PROGRESSION [None]
  - HYSTERECTOMY [None]
  - OMENTECTOMY [None]
  - OVARIAN CANCER [None]
  - SALPINGO-OOPHORECTOMY BILATERAL [None]
  - URINARY RETENTION [None]
